FAERS Safety Report 10136870 (Version 2)
Quarter: 2014Q2

REPORT INFORMATION
  Report Type: Spontaneous
  Country: US (occurrence: None)
  Receive Date: 20140425
  Receipt Date: 20140522
  Transmission Date: 20141212
  Serious: Yes (Hospitalization)
  Sender: FDA-Public Use
  Company Number: UTC-047234

PATIENT
  Age: 61 Year
  Sex: Male
  Weight: 136.5 kg

DRUGS (3)
  1. TYVASO [Suspect]
     Indication: COR PULMONALE CHRONIC
     Route: 055
     Dates: start: 20130503, end: 20140328
  2. ADCIRCA (TADALAFIL) [Concomitant]
     Indication: PULMONARY ARTERIAL HYPERTENSION
     Route: 041
     Dates: start: 20140328
  3. ADCIRA (TADALAFIL) [Concomitant]

REACTIONS (4)
  - Pulmonary arterial hypertension [None]
  - Condition aggravated [None]
  - Right ventricular failure [None]
  - Supraventricular tachycardia [None]
